FAERS Safety Report 5721018-2 (Version None)
Quarter: 2008Q2

REPORT INFORMATION
  Report Type: 
  Country: None (occurrence: None)
  Receive Date: 20080424
  Receipt Date: 20080408
  Transmission Date: 20081010
  Serious: Yes (Hospitalization)
  Sender: FDA-Public Use
  Company Number: 002#1#2008-00264

PATIENT
  Sex: Female

DRUGS (1)
  1. NEUPRO [Suspect]
     Indication: DRUG USE FOR UNKNOWN INDICATION
     Dosage: 4MB/24H, 1 IN 1 D, TRANSDERMAL
     Route: 062
     Dates: start: 20080101

REACTIONS (6)
  - GALLBLADDER DISORDER [None]
  - INFLUENZA [None]
  - NAUSEA [None]
  - RESPIRATORY DISORDER [None]
  - RESPIRATORY RATE DECREASED [None]
  - VOMITING [None]
